FAERS Safety Report 25236153 (Version 1)
Quarter: 2025Q2

REPORT INFORMATION
  Report Type: Spontaneous
  Country: US (occurrence: None)
  Receive Date: 20250424
  Receipt Date: 20250424
  Transmission Date: 20250717
  Serious: No
  Sender: FDA-CTU
  Company Number: None

PATIENT
  Age: 72 Year
  Sex: Female
  Weight: 81 kg

DRUGS (15)
  1. REPATHA [Suspect]
     Active Substance: EVOLOCUMAB
     Indication: Blood cholesterol abnormal
     Dosage: FREQUENCY : EVERY OTHER WEEK;?
     Route: 030
  2. ATENOLOL [Concomitant]
     Active Substance: ATENOLOL
  3. EXFORGE [Concomitant]
     Active Substance: AMLODIPINE BESYLATE\VALSARTAN
  4. TRIAMTERENE [Concomitant]
     Active Substance: TRIAMTERENE
  5. CYMBALTA [Concomitant]
     Active Substance: DULOXETINE HYDROCHLORIDE
  6. SYNTHROID [Concomitant]
     Active Substance: LEVOTHYROXINE SODIUM
  7. FLONASE [Concomitant]
     Active Substance: FLUTICASONE PROPIONATE
  8. VASCEPA [Concomitant]
     Active Substance: ICOSAPENT ETHYL
  9. METFORMIN [Concomitant]
     Active Substance: METFORMIN HYDROCHLORIDE
  10. DOXYCYCLINE [Concomitant]
     Active Substance: DOXYCYCLINE
  11. GLIMEPIRIDE [Concomitant]
     Active Substance: GLIMEPIRIDE
  12. VITAMINS [Concomitant]
     Active Substance: VITAMINS
  13. HERBALS\TURMERIC [Concomitant]
     Active Substance: HERBALS\TURMERIC
  14. D [Concomitant]
  15. Ultimate eye support [Concomitant]

REACTIONS (5)
  - Headache [None]
  - Vision blurred [None]
  - Diplopia [None]
  - Eye pain [None]
  - Ophthalmoplegia [None]

NARRATIVE: CASE EVENT DATE: 20250419
